FAERS Safety Report 6411572-X (Version None)
Quarter: 2009Q4

REPORT INFORMATION
  Report Type: 
  Country: None (occurrence: None)
  Receive Date: 20091023
  Receipt Date: 20091015
  Transmission Date: 20100525
  Serious: Yes (Other)
  Sender: FDA-Public Use
  Company Number: NO-AMGEN-US370044

PATIENT

DRUGS (1)
  1. ENBREL [Suspect]
     Indication: PSORIATIC ARTHROPATHY
     Dosage: DOSE UNKNOWN
     Route: 058
     Dates: start: 20040101

REACTIONS (1)
  - RENAL FAILURE ACUTE [None]
